FAERS Safety Report 22604515 (Version 1)
Quarter: 2023Q2

REPORT INFORMATION
  Report Type: Spontaneous
  Country: US (occurrence: US)
  Receive Date: 20230615
  Receipt Date: 20230615
  Transmission Date: 20230721
  Serious: No
  Sender: FDA-Public Use
  Company Number: US-IDORSIA-005546-2023-US

PATIENT
  Sex: Female

DRUGS (2)
  1. QUVIVIQ [Interacting]
     Active Substance: DARIDOREXANT
     Indication: Product used for unknown indication
     Dosage: UNK
     Route: 065
     Dates: end: 2023
  2. CAPLYTA [Interacting]
     Active Substance: LUMATEPERONE
     Indication: Bipolar disorder
     Dosage: 21 MG, QD
     Route: 048
     Dates: start: 202304

REACTIONS (3)
  - Drug interaction [Recovered/Resolved]
  - Sleep paralysis [Recovered/Resolved]
  - Initial insomnia [Not Recovered/Not Resolved]

NARRATIVE: CASE EVENT DATE: 20230101
